FAERS Safety Report 4585059-3 (Version None)
Quarter: 2005Q1

REPORT INFORMATION
  Report Type: 
  Country: None (occurrence: None)
  Receive Date: 20050214
  Receipt Date: 20050204
  Transmission Date: 20050727
  Serious: Yes (Other)
  Sender: FDA-Public Use
  Company Number: KII-2005-0015044

PATIENT
  Age: 18 Month
  Sex: Male

DRUGS (1)
  1. MORPHINE SULFATE [Suspect]
     Dosage: ORAL
     Route: 048
     Dates: start: 20050108

REACTIONS (10)
  - ACCIDENTAL EXPOSURE [None]
  - APNOEA [None]
  - DRUG SCREEN POSITIVE [None]
  - EYE MOVEMENT DISORDER [None]
  - MIOSIS [None]
  - PYREXIA [None]
  - RESPIRATORY DEPRESSION [None]
  - STRIDOR [None]
  - TACHYCARDIA [None]
  - TRISMUS [None]
